FAERS Safety Report 7651043-6 (Version None)
Quarter: 2011Q3

REPORT INFORMATION
  Report Type: 
  Country: None (occurrence: None)
  Receive Date: 20110802
  Receipt Date: 20090708
  Transmission Date: 20111222
  Serious: Yes (Death, Other)
  Sender: FDA-Public Use
  Company Number: US-BAYER-US-2007-006366

PATIENT
  Age: 70 Year
  Sex: Male
  Weight: 81.818 kg

DRUGS (28)
  1. ANTINEOPLASTIC AGENTS [Concomitant]
     Indication: BLADDER CANCER
     Dosage: UNK, UNK
     Dates: start: 20060101
  2. MAGNEVIST [Suspect]
     Dosage: 20 ML, 1 DOSE
     Route: 042
     Dates: start: 20040113, end: 20040113
  3. OMNISCAN [Suspect]
     Indication: ANGIOGRAM
  4. OPTIMARK [Suspect]
     Indication: ANGIOGRAM
  5. FERROUS SULFATE TAB [Concomitant]
     Indication: ANAEMIA
     Dosage: 325 UNK, 1X/DAY
     Route: 048
  6. SEVELAMER [Concomitant]
     Dosage: 800 MG, 3X/DAY
     Route: 048
  7. MAGNEVIST [Suspect]
     Dosage: 20 ML, 1 DOSE
     Route: 042
     Dates: start: 20030408, end: 20030408
  8. SODIUM BICARBONATE [Concomitant]
     Dosage: 650 MG, 3X/DAY
  9. LISINOPRIL [Concomitant]
     Indication: HYPERTENSION
     Dosage: 5 MG, 1X/DAY
  10. METOPROLOL TARTRATE [Concomitant]
  11. MULTIHANCE [Suspect]
     Indication: ANGIOGRAM
  12. MULTI-VITAMINS [Concomitant]
     Dosage: UNK, UNK
     Route: 048
  13. EZETIMIBE [Concomitant]
     Dosage: 10 MG, 1X/DAY
  14. FUROSEMIDE [Concomitant]
     Dosage: 40 MG, 1X/DAY
  15. DOXAZOSIN MESYLATE [Concomitant]
     Dosage: 6 MG, 1X/DAY
  16. MAGNEVIST [Suspect]
     Indication: ANGIOGRAM
     Dosage: 60 ML, 1 DOSE
     Route: 042
     Dates: start: 20021126, end: 20021126
  17. AMIODARONE HCL [Concomitant]
     Dosage: 200 MG, 1X/DAY
     Route: 048
  18. COUMADIN [Concomitant]
     Dosage: 1.5 MG, 1X/DAY
     Route: 048
  19. EPOETIN ALFA [Concomitant]
     Indication: ANAEMIA
     Dosage: 10,000 UNITS Q WEEK
     Route: 058
  20. IBUPROFEN [Concomitant]
     Indication: PAIN
     Dosage: 400 MG, AS REQ'D
     Route: 048
  21. TOCOPHEROL CONCENTRATE CAP [Concomitant]
     Dosage: 800 IU, 1X/DAY
     Route: 048
  22. CALCITRIOL [Concomitant]
     Dosage: .25 ?G, MWF
     Route: 048
  23. ZEMPLAR [Concomitant]
  24. HYDROCHLOROTHIAZIDE [Concomitant]
  25. PROHANCE [Suspect]
     Indication: ANGIOGRAM
  26. ALENDRONATE SODIUM [Concomitant]
     Dosage: 35 MG, 1X/WEEK
  27. CALCIUM ACETATE [Concomitant]
     Dosage: 667 MG, 3X/DAY
     Route: 048
  28. NIFEDIPINE [Concomitant]

REACTIONS (18)
  - MUSCULOSKELETAL STIFFNESS [None]
  - ABASIA [None]
  - PAIN [None]
  - MOBILITY DECREASED [None]
  - NEPHROGENIC SYSTEMIC FIBROSIS [None]
  - SKIN TIGHTNESS [None]
  - SKIN INDURATION [None]
  - FIBROSIS [None]
  - SKIN HYPERTROPHY [None]
  - BLADDER CANCER [None]
  - XEROSIS [None]
  - JOINT RANGE OF MOTION DECREASED [None]
  - SCAR [None]
  - JOINT CONTRACTURE [None]
  - PRURITUS [None]
  - RASH PAPULAR [None]
  - SKIN HYPERPIGMENTATION [None]
  - SKIN DISCOLOURATION [None]
